FAERS Safety Report 5774743-1 (Version None)
Quarter: 2008Q2

REPORT INFORMATION
  Report Type: 
  Country: None (occurrence: None)
  Receive Date: 20080617
  Receipt Date: 20080612
  Transmission Date: 20081010
  Serious: Yes (Hospitalization)
  Sender: FDA-Public Use
  Company Number: ES-JNJFOC-20080603078

PATIENT
  Age: 95 Year
  Sex: Male

DRUGS (8)
  1. ASPIRIN [Suspect]
     Indication: DRUG USE FOR UNKNOWN INDICATION
  2. TIOTROPIUM [Concomitant]
  3. ALFUZOSIN HCL [Concomitant]
  4. AMIODARONE HCL [Concomitant]
  5. FUROSEMIDE [Concomitant]
  6. LEVOTHYROXINE SODIUM [Concomitant]
  7. ALBUTEROL [Concomitant]
  8. IRON SUPPLEMENTS [Concomitant]

REACTIONS (1)
  - ARTERIAL HAEMORRHAGE [None]
